FAERS Safety Report 10546099 (Version 1)
Quarter: 2014Q4

REPORT INFORMATION
  Report Type: Spontaneous
  Country: US (occurrence: None)
  Receive Date: 20141020
  Receipt Date: 20141020
  Transmission Date: 20150529
  Serious: Yes (Other)
  Sender: FDA-Public Use
  Company Number: AEGR000576

PATIENT
  Age: 72 Year
  Sex: Male
  Weight: 77.1 kg

DRUGS (5)
  1. ATORVASTATIN (ATORVASTATIN CALCIUM) [Concomitant]
  2. JUXTAPID [Suspect]
     Active Substance: LOMITAPIDE MESYLATE
     Indication: HYPERCHOLESTEROLAEMIA
     Route: 048
     Dates: start: 201406
  3. ATENOLOL. [Concomitant]
     Active Substance: ATENOLOL
  4. POTASSIUM (POTASSIUM BICARBONATE, POTASSIUM CHLORIDE) [Concomitant]
  5. HYDROCHLOROTHIAZIDE. [Concomitant]
     Active Substance: HYDROCHLOROTHIAZIDE

REACTIONS (2)
  - Off label use [None]
  - Abdominal discomfort [None]

NARRATIVE: CASE EVENT DATE: 201406
